FAERS Safety Report 18110034 (Version 1)
Quarter: 2020Q3

REPORT INFORMATION
  Report Type: Spontaneous
  Country: CA (occurrence: CA)
  Receive Date: 20200804
  Receipt Date: 20200804
  Transmission Date: 20201103
  Serious: Yes (Death)
  Sender: FDA-Public Use
  Company Number: CA-ALLERGAN-2028759US

PATIENT
  Sex: Male

DRUGS (4)
  1. ESCITALOPRAM OXALATE ? BP [Suspect]
     Active Substance: ESCITALOPRAM OXALATE
     Indication: ANXIETY
  2. LORAZEPAM. [Concomitant]
     Active Substance: LORAZEPAM
     Indication: PRODUCT USED FOR UNKNOWN INDICATION
     Route: 065
  3. ESCITALOPRAM OXALATE ? BP [Suspect]
     Active Substance: ESCITALOPRAM OXALATE
     Indication: DEPRESSION
     Dosage: UNK
     Route: 065
  4. APO?QUETIAPINE [Concomitant]
     Active Substance: QUETIAPINE
     Indication: PRODUCT USED FOR UNKNOWN INDICATION
     Route: 065

REACTIONS (10)
  - Chest discomfort [Fatal]
  - Disturbance in attention [Fatal]
  - Asthenia [Fatal]
  - Mood swings [Fatal]
  - Weight decreased [Fatal]
  - Depression [Fatal]
  - Anxiety [Fatal]
  - Loss of personal independence in daily activities [Fatal]
  - Completed suicide [Fatal]
  - Restlessness [Fatal]
